APPROVED DRUG PRODUCT: CYCLAFEM 7/7/7
Active Ingredient: ETHINYL ESTRADIOL; NORETHINDRONE
Strength: 0.035MG,0.035MG,0.035MG;0.5MG,0.75MG,1MG
Dosage Form/Route: TABLET;ORAL-28
Application: A076338 | Product #001
Applicant: PH HEALTH LTD
Approved: Nov 16, 2010 | RLD: No | RS: No | Type: DISCN